FAERS Safety Report 25322092 (Version 7)
Quarter: 2025Q4

REPORT INFORMATION
  Report Type: Spontaneous
  Country: EU (occurrence: EU)
  Receive Date: 20250516
  Receipt Date: 20251028
  Transmission Date: 20260118
  Serious: Yes (Other)
  Sender: AUROBINDO
  Company Number: EU-PFIZER INC-PV202500051065

PATIENT
  Age: 64 Year
  Sex: Female
  Weight: 62 kg

DRUGS (6)
  1. BORTEZOMIB [Suspect]
     Active Substance: BORTEZOMIB
     Indication: Thrombotic thrombocytopenic purpura
     Dosage: 1.3 MILLIGRAM/SQ. METER, CYCLICAL
     Route: 065
  2. BORTEZOMIB [Suspect]
     Active Substance: BORTEZOMIB
     Dosage: 1 MILLIGRAM/SQ. METER, CYCLICAL
     Route: 065
  3. RITUXIMAB [Concomitant]
     Active Substance: RITUXIMAB
     Indication: Thrombotic thrombocytopenic purpura
     Dosage: UNK, EVERY WEEK (ONCE A WEEK FOR 4 WEEKS PLUS 2 MONTHLY INFUSIONS AS MAINTENANCE (SIX INFUSIONS IN T
     Route: 065
  4. CAPLACIZUMAB [Concomitant]
     Active Substance: CAPLACIZUMAB
     Indication: Thrombotic thrombocytopenic purpura
     Dosage: UNK
     Route: 065
  5. CYCLOPHOSPHAMIDE [Concomitant]
     Active Substance: CYCLOPHOSPHAMIDE
     Indication: Thrombotic thrombocytopenic purpura
     Dosage: 500 MILLIGRAM (500 MILLIGRAM, REPEATED AFTER 21 DAYS INSTEAD OF 15)
     Route: 065
  6. HUMAN PLASMA [Concomitant]
     Active Substance: HUMAN PLASMA
     Indication: Thrombotic thrombocytopenic purpura
     Dosage: UNK
     Route: 065

REACTIONS (5)
  - Neurotoxicity [Recovering/Resolving]
  - Skin reaction [Unknown]
  - Neuropathy peripheral [Unknown]
  - Off label use [Unknown]
  - Product use in unapproved indication [Unknown]
